FAERS Safety Report 13364959 (Version 1)
Quarter: 2017Q1

REPORT INFORMATION
  Report Type: Spontaneous
  Country: US (occurrence: US)
  Receive Date: 20170323
  Receipt Date: 20170323
  Transmission Date: 20170429
  Serious: No
  Sender: FDA-Public Use
  Company Number: US-ROCHE-1486963

PATIENT
  Age: 53 Year
  Sex: Male
  Weight: 114.59 kg

DRUGS (11)
  1. JANUVIA [Concomitant]
     Active Substance: SITAGLIPTIN PHOSPHATE
  2. ARAVA [Concomitant]
     Active Substance: LEFLUNOMIDE
  3. PRANDIN [Concomitant]
     Active Substance: REPAGLINIDE
  4. SPIRIVA [Concomitant]
     Active Substance: TIOTROPIUM BROMIDE MONOHYDRATE
  5. SYMBICORT [Concomitant]
     Active Substance: BUDESONIDE\FORMOTEROL FUMARATE DIHYDRATE
  6. XOLAIR [Suspect]
     Active Substance: OMALIZUMAB
     Indication: ASTHMA
     Route: 058
     Dates: start: 20140902
  7. XOLAIR [Suspect]
     Active Substance: OMALIZUMAB
     Route: 058
     Dates: start: 20140813
  8. ALBUTEROL. [Concomitant]
     Active Substance: ALBUTEROL
  9. IPRATROPIUM [Concomitant]
     Active Substance: IPRATROPIUM
  10. LANTUS [Concomitant]
     Active Substance: INSULIN GLARGINE
  11. METHOTREXATE. [Concomitant]
     Active Substance: METHOTREXATE

REACTIONS (7)
  - Pain [Unknown]
  - Serum sickness [Recovered/Resolved]
  - Influenza like illness [Recovered/Resolved]
  - Feeling abnormal [Unknown]
  - Asthma [Unknown]
  - Malaise [Unknown]
  - Nausea [Recovered/Resolved]

NARRATIVE: CASE EVENT DATE: 20141022
